FAERS Safety Report 11166347 (Version 1)
Quarter: 2015Q2

REPORT INFORMATION
  Report Type: Spontaneous
  Country: US (occurrence: US)
  Receive Date: 20150605
  Receipt Date: 20150605
  Transmission Date: 20150821
  Serious: No
  Sender: FDA-Public Use
  Company Number: US-JNJFOC-20150419156

PATIENT
  Sex: Female

DRUGS (1)
  1. GENERIC METHYLPHENIDATE HYDROCHLORIDE [Suspect]
     Active Substance: METHYLPHENIDATE HYDROCHLORIDE
     Indication: ATTENTION DEFICIT/HYPERACTIVITY DISORDER
     Dosage: PATIENT STARTED METHYLPHENIDATE 10MG EXTRA DOSE WITH 27 MG ??27MG+10MG
     Route: 048
     Dates: start: 201311, end: 201412

REACTIONS (1)
  - Drug ineffective [Unknown]
